FAERS Safety Report 7536654-0 (Version None)
Quarter: 2011Q2

REPORT INFORMATION
  Report Type: 
  Country: None (occurrence: None)
  Receive Date: 20110609
  Receipt Date: 20110524
  Transmission Date: 20111010
  Serious: Yes (Death, Hospitalization)
  Sender: FDA-Public Use
  Company Number: A0803147A

PATIENT
  Age: 41 Year
  Sex: Male
  Weight: 89.1 kg

DRUGS (4)
  1. AVANDIA [Suspect]
     Dosage: 4MG THREE TIMES PER DAY
     Route: 048
     Dates: start: 20000915, end: 20060120
  2. LOTREL [Concomitant]
  3. BENICAR [Concomitant]
  4. GLUCOPHAGE [Concomitant]

REACTIONS (3)
  - CEREBROVASCULAR ACCIDENT [None]
  - DEATH [None]
  - TRANSIENT ISCHAEMIC ATTACK [None]
